FAERS Safety Report 9231218 (Version 2)
Quarter: 2013Q2

REPORT INFORMATION
  Report Type: Spontaneous
  Country: US (occurrence: US)
  Receive Date: 20130415
  Receipt Date: 20130625
  Transmission Date: 20140414
  Serious: Yes (Hospitalization)
  Sender: FDA-Public Use
  Company Number: US-FRI-1000044242

PATIENT
  Age: 46 Year
  Sex: Male
  Weight: 83.4 kg

DRUGS (4)
  1. LINZESS [Suspect]
     Indication: CONSTIPATION
     Dosage: 145 MCG
     Route: 048
     Dates: start: 20130319, end: 20130408
  2. LINZESS [Suspect]
     Indication: ABDOMINAL PAIN
  3. LINZESS [Suspect]
     Indication: CONSTIPATION
     Dosage: 290 MCG
     Route: 048
     Dates: start: 20130409, end: 201304
  4. LINZESS [Suspect]
     Indication: ABDOMINAL PAIN

REACTIONS (3)
  - Pancreatitis acute [Unknown]
  - Renal cyst [Unknown]
  - Diverticulum [Unknown]
